FAERS Safety Report 5335257-6 (Version None)
Quarter: 2007Q2

REPORT INFORMATION
  Report Type: 
  Country: None (occurrence: None)
  Receive Date: 20070525
  Receipt Date: 20070515
  Transmission Date: 20071010
  Serious: Yes (Disabling, Other)
  Sender: FDA-Public Use
  Company Number: DE-PFIZER INC-2007020675

PATIENT
  Sex: Female
  Weight: 61 kg

DRUGS (1)
  1. SUTENT [Suspect]
     Indication: GASTROINTESTINAL STROMAL TUMOUR
     Dosage: DAILY DOSE:37.5MG
     Route: 048
     Dates: start: 20061102, end: 20070101

REACTIONS (2)
  - BONE PAIN [None]
  - HYPERPARATHYROIDISM [None]
